FAERS Safety Report 9335912 (Version 2)
Quarter: 2013Q4

REPORT INFORMATION
  Report Type: Spontaneous
  Country: US (occurrence: US)
  Receive Date: 20130606
  Receipt Date: 20131008
  Transmission Date: 20140711
  Serious: No
  Sender: FDA-Public Use
  Company Number: US-AMGEN-USASP2013033051

PATIENT
  Age: 76 Year
  Sex: Female
  Weight: 64.86 kg

DRUGS (1)
  1. PROLIA [Suspect]
     Indication: OSTEOPOROSIS POSTMENOPAUSAL
     Dosage: UNK
     Dates: start: 20130327

REACTIONS (2)
  - Myalgia [Recovering/Resolving]
  - Groin pain [Recovering/Resolving]
